FAERS Safety Report 13427750 (Version 1)
Quarter: 2017Q2

REPORT INFORMATION
  Report Type: Not Available
  Country: US (occurrence: US)
  Receive Date: 20170411
  Receipt Date: 20170411
  Transmission Date: 20170830
  Serious: Yes (Other)
  Sender: FDA-Public Use
  Company Number: US-ANIPHARMA-2017-US-003662

PATIENT
  Age: 43 Year
  Sex: Female

DRUGS (1)
  1. HYDROCORTISONE RECTAL SUSPENSION (NON-SPECIFC) [Suspect]
     Active Substance: HYDROCORTISONE
     Dosage: 100 MG 3 TIMES DAILY
     Route: 065

REACTIONS (2)
  - Posterior reversible encephalopathy syndrome [Unknown]
  - Reversible cerebral vasoconstriction syndrome [Unknown]
